FAERS Safety Report 21975654 (Version 1)
Quarter: 2023Q1

REPORT INFORMATION
  Report Type: Other
  Country: BR (occurrence: None)
  Receive Date: 20230210
  Receipt Date: 20230210
  Transmission Date: 20230417
  Serious: Yes (Other)
  Sender: FDA-Public Use
  Company Number: BR-ROCHE-3235428

PATIENT
  Age: 48 Year
  Sex: Male
  Weight: 78 kg

DRUGS (9)
  1. OCREVUS [Suspect]
     Active Substance: OCRELIZUMAB
     Indication: Primary progressive multiple sclerosis
     Route: 042
     Dates: start: 201904
  2. LOSARTAN [Concomitant]
     Active Substance: LOSARTAN
     Indication: Hypertension
  3. DEPAKOTE [Concomitant]
     Active Substance: DIVALPROEX SODIUM
     Indication: Seizure
  4. KEPPRA [Concomitant]
     Active Substance: LEVETIRACETAM
     Indication: Seizure
  5. BIOTIN [Concomitant]
     Active Substance: BIOTIN
  6. AMANTADINE [Concomitant]
     Active Substance: AMANTADINE
     Indication: Dizziness
  7. FUROSEMIDE [Concomitant]
     Active Substance: FUROSEMIDE
  8. DIPYRONE [Concomitant]
     Active Substance: DIPYRONE
     Dates: start: 20221206
  9. DIPYRONE [Concomitant]
     Active Substance: DIPYRONE
     Dosage: DOSE: 43 DROPS

REACTIONS (12)
  - Neurogenic bladder [Unknown]
  - Pyrexia [Unknown]
  - Tremor [Unknown]
  - Rash [Unknown]
  - Back pain [Unknown]
  - Gait disturbance [Unknown]
  - Fatigue [Unknown]
  - Dizziness [Unknown]
  - General physical health deterioration [Not Recovered/Not Resolved]
  - Influenza [Recovered/Resolved]
  - Mood swings [Unknown]
  - Peripheral swelling [Unknown]

NARRATIVE: CASE EVENT DATE: 20210101
